FAERS Safety Report 4283229-5 (Version None)
Quarter: 2004Q1

REPORT INFORMATION
  Report Type: 
  Country: None (occurrence: None)
  Receive Date: 20040129
  Receipt Date: 20040120
  Transmission Date: 20041129
  Serious: Yes (Hospitalization)
  Sender: FDA-Public Use
  Company Number: FR-JNJFOC-20040103625

PATIENT
  Age: 88 Year
  Sex: Female

DRUGS (8)
  1. RISPERDAL [Suspect]
     Dosage: 1 MG, IN 1 DAY, ORAL
     Route: 048
     Dates: end: 20031221
  2. CORVASAL (MOLSIDOMINE) [Concomitant]
  3. LORAZEPAM [Concomitant]
  4. FRAXIPARINE (HEPARIN-FRACTION),  CALCIUM SALT [Concomitant]
  5. SEROPRAM (CITALOPRAM HYDROBROMIDE) [Concomitant]
  6. CARDENSIEL (NICARDIPINE HYDROCHLORIDE) [Concomitant]
  7. RISORDAN (ISOSORBIDE DINITRATE) [Concomitant]
  8. KARDEGIC (ACETYLSALICYLIC LYSINE) [Concomitant]

REACTIONS (9)
  - BLOOD GLUCOSE INCREASED [None]
  - CHEST PAIN [None]
  - ELECTROCARDIOGRAM QT PROLONGED [None]
  - FALL [None]
  - HAND FRACTURE [None]
  - MALAISE [None]
  - MYOCARDIAL INFARCTION [None]
  - MYOGLOBIN BLOOD INCREASED [None]
  - SINUS TACHYCARDIA [None]
